FAERS Safety Report 9343636 (Version 1)
Quarter: 2013Q2

REPORT INFORMATION
  Report Type: Spontaneous
  Country: CA (occurrence: CA)
  Receive Date: 20130612
  Receipt Date: 20130612
  Transmission Date: 20140414
  Serious: Yes (Death, Hospitalization, Other)
  Sender: FDA-Public Use
  Company Number: CA-AMGEN-CANSP2013040927

PATIENT
  Age: 89 Year
  Sex: Female

DRUGS (5)
  1. PROLIA [Suspect]
     Indication: PRODUCT USED FOR UNKNOWN INDICATION
     Dosage: 60 MG, ONE TIME DOSE
     Route: 058
  2. GLICLAZIDE [Concomitant]
  3. METFORMIN [Concomitant]
  4. NORVASC [Concomitant]
  5. RAMIPRIL [Concomitant]

REACTIONS (10)
  - Death [Fatal]
  - C-reactive protein increased [Unknown]
  - Delirium [Unknown]
  - Failure to thrive [Unknown]
  - Hypoglycaemia [Unknown]
  - Pemphigoid [Unknown]
  - Purulence [Unknown]
  - Skin ulcer [Unknown]
  - White blood cell count increased [Unknown]
  - Cellulitis [Unknown]
